FAERS Safety Report 5303236-0 (Version None)
Quarter: 2007Q2

REPORT INFORMATION
  Report Type: 
  Country: None (occurrence: None)
  Receive Date: 20070420
  Receipt Date: 20070412
  Transmission Date: 20071010
  Serious: Yes (Hospitalization)
  Sender: FDA-Public Use
  Company Number: CZ-ELI_LILLY_AND_COMPANY-CZ200608003244

PATIENT
  Age: 22 Year
  Sex: Female

DRUGS (6)
  1. ZYPREXA [Suspect]
     Indication: BIPOLAR DISORDER
     Dosage: 25 MG, DAILY (1/D)
     Route: 048
     Dates: start: 20050217
  2. ZYPREXA [Suspect]
     Dosage: UNK, UNK
     Route: 048
     Dates: start: 20020101
  3. ZYPREXA [Suspect]
     Dosage: 20 MG, DAILY (1/D)
     Dates: start: 20060704
  4. LAMOTRIGINE [Concomitant]
     Indication: BIPOLAR DISORDER
     Dosage: 150 MG, DAILY (1/D)
  5. LAMOTRIGINE [Concomitant]
     Dosage: UNK, DAILY (1/D)
     Dates: start: 20060601, end: 20060730
  6. HALOPERIDOL [Concomitant]
     Dates: start: 20060811

REACTIONS (7)
  - ANTEPARTUM HAEMORRHAGE [None]
  - ASTHMA [None]
  - BIPOLAR DISORDER [None]
  - DEPRESSION [None]
  - DRUG EXPOSURE DURING PREGNANCY [None]
  - DRUG WITHDRAWAL SYNDROME [None]
  - PRESCRIBED OVERDOSE [None]
